FAERS Safety Report 15960873 (Version 2)
Quarter: 2019Q1

REPORT INFORMATION
  Report Type: Spontaneous
  Country: US (occurrence: US)
  Receive Date: 20190214
  Receipt Date: 20190305
  Transmission Date: 20190417
  Serious: No
  Sender: FDA-Public Use
  Company Number: US-MYLANLABS-2019M1008842

PATIENT

DRUGS (2)
  1. ESTRADIOL TRANSDERMAL SYSTEM [Suspect]
     Active Substance: ESTRADIOL
     Indication: HORMONE REPLACEMENT THERAPY
     Dosage: 5 MILLIGRAM
     Route: 062
  2. NEOSPORIN [Concomitant]
     Active Substance: BACITRACIN ZINC\NEOMYCIN SULFATE\POLYMYXIN B SULFATE
     Dosage: UNK

REACTIONS (6)
  - Application site pruritus [Recovered/Resolved]
  - Application site mass [Recovered/Resolved]
  - Application site pain [Recovered/Resolved]
  - Application site rash [Recovered/Resolved]
  - Application site erythema [Recovered/Resolved]
  - Product substitution issue [None]
